FAERS Safety Report 23751837 (Version 1)
Quarter: 2024Q2

REPORT INFORMATION
  Report Type: Spontaneous
  Country: JP (occurrence: JP)
  Receive Date: 20240417
  Receipt Date: 20240417
  Transmission Date: 20240715
  Serious: Yes (Other)
  Sender: FDA-Public Use
  Company Number: JP-PFIZER INC-PV202400048397

PATIENT
  Age: 64 Year
  Sex: Male
  Weight: 49.5 kg

DRUGS (18)
  1. METHOTREXATE SODIUM [Suspect]
     Active Substance: METHOTREXATE SODIUM
     Indication: Polychondritis
     Dosage: 6 MG, WEEKLY
     Route: 048
  2. METHOTREXATE SODIUM [Suspect]
     Active Substance: METHOTREXATE SODIUM
     Indication: Scleritis
  3. TOCILIZUMAB [Suspect]
     Active Substance: TOCILIZUMAB
     Indication: Polychondritis
     Dosage: 162 MG, WEEKLY
     Route: 048
  4. PREDNISOLONE [Concomitant]
     Active Substance: PREDNISOLONE
     Indication: Polychondritis
     Dosage: 6 MG, DAILY
  5. PREDNISOLONE [Concomitant]
     Active Substance: PREDNISOLONE
     Indication: Scleritis
     Dosage: 10 MG, DAILY (5 MG 2 TABLETS/DAY)
     Route: 048
  6. PREDNISOLONE [Concomitant]
     Active Substance: PREDNISOLONE
     Dosage: 40 MG, DAILY
  7. ADALIMUMAB [Concomitant]
     Active Substance: ADALIMUMAB\ISOPROPYL ALCOHOL
     Dosage: UNK
  8. SULFAMETHOXAZOLE\TRIMETHOPRIM [Concomitant]
     Active Substance: SULFAMETHOXAZOLE\TRIMETHOPRIM
     Dosage: 2 DF, WEEKLY
     Route: 048
  9. TENELIGLIPTIN [Concomitant]
     Active Substance: TENELIGLIPTIN
     Dosage: 1 DF, DAILY
     Route: 048
  10. ESOMEPRAZOLE [Concomitant]
     Active Substance: ESOMEPRAZOLE
     Dosage: 1 DF, DAILY
     Route: 048
  11. ELDECALCITOL [Concomitant]
     Active Substance: ELDECALCITOL
     Dosage: 1 DF, DAILY
     Route: 048
  12. ALENDRONIC ACID [Concomitant]
     Active Substance: ALENDRONIC ACID
     Dosage: 35 MG, WEEKLY
     Route: 048
  13. FEBUXOSTAT [Concomitant]
     Active Substance: FEBUXOSTAT
     Dosage: 1 DF, DAILY
     Route: 048
  14. LOXOPROFEN [Concomitant]
     Active Substance: LOXOPROFEN
     Dosage: 3 DF, DAILY
     Route: 048
  15. EDOXABAN [Concomitant]
     Active Substance: EDOXABAN
     Dosage: 1 DF, DAILY
     Route: 048
  16. LEVOTHYROXINE [Concomitant]
     Active Substance: LEVOTHYROXINE\LEVOTHYROXINE SODIUM
     Dosage: 1 DF, DAILY
     Route: 048
  17. FEXOFENADINE [Concomitant]
     Active Substance: FEXOFENADINE HYDROCHLORIDE
     Dosage: 4 DF, DAILY
     Route: 048
  18. CARBOCYSTEINE [Concomitant]
     Active Substance: CARBOCYSTEINE
     Dosage: 3 DF, DAILY
     Route: 048

REACTIONS (8)
  - Skin infection [Recovering/Resolving]
  - Osteomyelitis [Recovering/Resolving]
  - Haematological infection [Recovering/Resolving]
  - Arthritis bacterial [Recovering/Resolving]
  - Arthritis [Recovering/Resolving]
  - Mycobacterium chelonae infection [Recovering/Resolving]
  - Off label use [Unknown]
  - Drug ineffective for unapproved indication [Unknown]
